FAERS Safety Report 24429130 (Version 1)
Quarter: 2024Q4

REPORT INFORMATION
  Report Type: Spontaneous
  Country: US (occurrence: US)
  Receive Date: 20241011
  Receipt Date: 20241011
  Transmission Date: 20250115
  Serious: No
  Sender: ABBVIE
  Company Number: US-ABBVIE-5952977

PATIENT
  Sex: Male

DRUGS (1)
  1. SKYRIZI [Suspect]
     Active Substance: RISANKIZUMAB-RZAA
     Indication: Crohn^s disease
     Dosage: BATCH LOT NUMBER 23-005216 (KIT #1317347)?DOSAGE: 90 MG/ ML PRE-FILLED SYRINGE?EACH DOSE OF 600MG...
     Route: 042

REACTIONS (2)
  - Product storage error [Unknown]
  - Wrong product administered [Unknown]

NARRATIVE: CASE EVENT DATE: 20240808
